FAERS Safety Report 4534185-3 (Version None)
Quarter: 2004Q4

REPORT INFORMATION
  Report Type: 
  Country: None (occurrence: None)
  Receive Date: 20041214
  Receipt Date: 20040905
  Transmission Date: 20050328
  Serious: No
  Sender: FDA-Public Use
  Company Number: 2004233558US

PATIENT
  Age: 54 Year
  Sex: Female
  Weight: 81.6 kg

DRUGS (4)
  1. BEXTRA [Suspect]
     Indication: PAIN
     Dosage: 10 MG, QD, ORAL
     Route: 048
     Dates: start: 20040831, end: 20040901
  2. SYNTHROID [Concomitant]
  3. DIOVAN [Concomitant]
  4. OMEPRAZOLE [Concomitant]

REACTIONS (8)
  - BLOOD GLUCOSE INCREASED [None]
  - HYPERTENSION [None]
  - INSOMNIA [None]
  - MALAISE [None]
  - NERVOUSNESS [None]
  - PRURITUS GENERALISED [None]
  - RASH GENERALISED [None]
  - TREMOR [None]
